FAERS Safety Report 5996628-8 (Version None)
Quarter: 2008Q4

REPORT INFORMATION
  Report Type: 
  Country: None (occurrence: None)
  Receive Date: 20081204
  Receipt Date: 20081118
  Transmission Date: 20090506
  Serious: Yes (Congenital Anomaly)
  Sender: FDA-Public Use
  Company Number: B0548040A

PATIENT
  Age: 37 Year
  Sex: Female

DRUGS (5)
  1. BETAMETHASONE [Suspect]
  2. DIGOXIN [Suspect]
     Dosage: .5 MG, ORAL
     Route: 048
  3. SOTALOL HCL [Suspect]
     Dosage: 160 MG/ TWICE PER DAY/ ORAL
     Route: 048
  4. ACTIGALL [Suspect]
  5. VITAMIN K (FORMULATION UNKNOWN) (VITAMIN K) [Suspect]

REACTIONS (7)
  - ABDOMINAL PAIN [None]
  - CAESAREAN SECTION [None]
  - CHOLESTASIS [None]
  - DRUG EXPOSURE DURING PREGNANCY [None]
  - FAECES DISCOLOURED [None]
  - PREMATURE RUPTURE OF MEMBRANES [None]
  - PRURITUS [None]
